FAERS Safety Report 22723134 (Version 4)
Quarter: 2023Q4

REPORT INFORMATION
  Report Type: Report from Study
  Country: IL (occurrence: IL)
  Receive Date: 20230719
  Receipt Date: 20231011
  Transmission Date: 20240110
  Serious: Yes (Hospitalization, Other)
  Sender: FDA-Public Use
  Company Number: IL-BAXTER-2023BAX026447

PATIENT
  Age: 68 Year
  Sex: Female
  Weight: 67 kg

DRUGS (24)
  1. CYCLOPHOSPHAMIDE [Suspect]
     Active Substance: CYCLOPHOSPHAMIDE
     Indication: Follicular lymphoma
     Dosage: 1270 MG, EVERY 3 WEEKS
     Route: 042
     Dates: start: 20230625
  2. DOXORUBICIN [Suspect]
     Active Substance: DOXORUBICIN
     Indication: Follicular lymphoma
     Dosage: 85 MG, EVERY 3 WEEKS
     Route: 042
     Dates: start: 20230625
  3. EPCORITAMAB [Suspect]
     Active Substance: EPCORITAMAB
     Indication: Follicular lymphoma
     Dosage: 0.16 MG, PRIMING DOSE: C1, D1, TOTAL
     Route: 058
     Dates: start: 20230625, end: 20230625
  4. EPCORITAMAB [Suspect]
     Active Substance: EPCORITAMAB
     Dosage: 0.16 MG, EVERY 1 WEEKS
     Route: 058
     Dates: start: 20230716
  5. RITUXIMAB [Suspect]
     Active Substance: RITUXIMAB
     Indication: Follicular lymphoma
     Dosage: 635 MG, EVERY 3 WEEKS
     Route: 042
     Dates: start: 20230625
  6. PREDNISONE [Suspect]
     Active Substance: PREDNISONE
     Indication: Follicular lymphoma
     Dosage: 100 MG, DAY 1-5 OF EACH CYLE, EVERY 1 DAY
     Route: 048
     Dates: start: 20230625
  7. POLATUZUMAB VEDOTIN [Suspect]
     Active Substance: POLATUZUMAB VEDOTIN
     Indication: Follicular lymphoma
     Dosage: 123 MG, EVERY 3 WEEKS
     Route: 042
     Dates: start: 20230625
  8. IBRUTINIB [Suspect]
     Active Substance: IBRUTINIB
     Indication: Follicular lymphoma
     Dosage: DRUG NOT ADMINISTERED
     Route: 048
  9. VENETOCLAX [Suspect]
     Active Substance: VENETOCLAX
     Indication: Follicular lymphoma
     Dosage: DRUG NOT ADMINISTERED
     Route: 048
  10. EPHEDRINE HYDROCHLORIDE [Concomitant]
     Active Substance: EPHEDRINE HYDROCHLORIDE
     Indication: Diabetes mellitus
     Dosage: 850 MG, EVERY 1 DAYS, START DATE: IN 2008
     Route: 065
  11. EMPAGLIFLOZIN [Concomitant]
     Active Substance: EMPAGLIFLOZIN
     Indication: Diabetes mellitus
     Dosage: 10 MG, EVERY 1 DAYS, START DATE: IN 2008
     Route: 065
  12. LEVOTHYROXINE [Concomitant]
     Active Substance: LEVOTHYROXINE
     Indication: Hypothyroidism
     Dosage: 100 UG, 4/WEEKS, START DATE: IN 2008
     Route: 065
  13. LEVOTHYROXINE [Concomitant]
     Active Substance: LEVOTHYROXINE
     Dosage: 100 UG, 3/WEEKS, START DATE: IN 2008
     Route: 065
  14. ALLOPURINOL [Concomitant]
     Active Substance: ALLOPURINOL
     Indication: Prophylaxis
     Dosage: 300 MG, EVERY 1 DAYS
     Route: 065
     Dates: start: 20230625
  15. CALCIUM [Concomitant]
     Active Substance: CALCIUM
     Indication: Osteoporosis
     Dosage: 600 MG, AS NECESSARY, START DATE: JAN-2023
     Route: 065
  16. EXFORGE [Concomitant]
     Active Substance: AMLODIPINE BESYLATE\VALSARTAN
     Indication: Hypertension
     Dosage: 80/5 MG, EVERY 1 DAYS, START DATE: IN 2008
     Route: 065
     Dates: end: 20230623
  17. EXFORGE [Concomitant]
     Active Substance: AMLODIPINE BESYLATE\VALSARTAN
     Dosage: 80/5 MG, EVERY 1 DAYS
     Route: 065
     Dates: start: 20230626
  18. METFORMIN HYDROCHLORIDE [Concomitant]
     Active Substance: METFORMIN HYDROCHLORIDE
     Indication: Diabetes mellitus
     Dosage: 850 MG, EVERY 1 DAYS, START DATE: IN 2008
     Route: 065
  19. JARDIANCE [Concomitant]
     Active Substance: EMPAGLIFLOZIN
     Indication: Diabetes mellitus
     Dosage: 10 MG, EVERY 1 DAYS. START DATE: IN 2008
     Route: 065
  20. LEVOTHYROXINE [Concomitant]
     Active Substance: LEVOTHYROXINE
     Indication: Hypothyroidism
     Dosage: 150 UG, 4/WEEKS, START DATE: IN 2008
     Route: 065
  21. LEVOTHYROXINE [Concomitant]
     Active Substance: LEVOTHYROXINE
     Dosage: 100 UG, 3/WEEKS, START DATE: IN 2008
     Route: 065
  22. ALLOPURINOL [Concomitant]
     Active Substance: ALLOPURINOL
     Indication: Prophylaxis
     Dosage: 300 MG, EVERY 1 DAYS
     Route: 065
     Dates: start: 20230625
  23. MAGNOX [Concomitant]
     Indication: Hypomagnesaemia
     Dosage: 520 MG, AS NECESSARY, START IN 2019
     Route: 065
     Dates: end: 20230622
  24. FULPHILA [Concomitant]
     Active Substance: PEGFILGRASTIM-JMDB
     Indication: Prophylaxis
     Dosage: 6 MG, TOTAL
     Route: 065
     Dates: start: 20230626, end: 20230626

REACTIONS (1)
  - Febrile neutropenia [Recovered/Resolved]

NARRATIVE: CASE EVENT DATE: 20230703
